FAERS Safety Report 4824223-2 (Version None)
Quarter: 2005Q4

REPORT INFORMATION
  Report Type: 
  Country: None (occurrence: None)
  Receive Date: 20051108
  Receipt Date: 20050422
  Transmission Date: 20060501
  Serious: Yes (Hospitalization)
  Sender: FDA-Public Use
  Company Number: 2005BI008384

PATIENT
  Age: 69 Year
  Sex: Female
  Weight: 95.2554 kg

DRUGS (5)
  1. AVONEX [Suspect]
     Indication: MULTIPLE SCLEROSIS
     Dosage: 30 UG;QW; IM
     Route: 030
     Dates: start: 20010101, end: 20030801
  2. AVONEX [Suspect]
     Indication: MULTIPLE SCLEROSIS
     Dosage: 30 UG;QW; IM
     Route: 030
     Dates: start: 20030801
  3. DEPAKOTE [Concomitant]
  4. LIPITOR [Concomitant]
  5. NEXIUM [Concomitant]

REACTIONS (4)
  - APHASIA [None]
  - DIZZINESS [None]
  - INCORRECT DOSE ADMINISTERED [None]
  - STRESS [None]
